FAERS Safety Report 5722757-X (Version None)
Quarter: 2008Q2

REPORT INFORMATION
  Report Type: 
  Country: None (occurrence: None)
  Receive Date: 20080425
  Receipt Date: 20080415
  Transmission Date: 20081010
  Serious: Yes (Hospitalization)
  Sender: FDA-Public Use
  Company Number: 2008-02440

PATIENT
  Age: 35 Year
  Sex: Female

DRUGS (1)
  1. PROGESTERONE IN OIL INJ [Suspect]
     Indication: ASSISTED FERTILISATION
     Dosage: 50 MG, DAILY, INTRAMUSCULAR
     Route: 030

REACTIONS (1)
  - EOSINOPHILIC PNEUMONIA ACUTE [None]
